FAERS Safety Report 6150738-3 (Version None)
Quarter: 2009Q2

REPORT INFORMATION
  Report Type: 
  Country: None (occurrence: None)
  Receive Date: 20090409
  Receipt Date: 20090401
  Transmission Date: 20091009
  Serious: Yes (Life-Threatening, Hospitalization)
  Sender: FDA-Public Use
  Company Number: TR-BAXTER-2009BH005312

PATIENT
  Age: 21 Month
  Sex: Male

DRUGS (2)
  1. SODIUM CHLORIDE 0.9% IN PLASTIC CONTAINER [Suspect]
     Indication: DRUG USE FOR UNKNOWN INDICATION
     Route: 042
     Dates: start: 20090401, end: 20090401
  2. KLACID [Suspect]
     Indication: DRUG USE FOR UNKNOWN INDICATION
     Route: 042
     Dates: start: 20090401, end: 20090401

REACTIONS (2)
  - ADVERSE EVENT [None]
  - DRUG DELIVERY SYSTEM MALFUNCTION [None]
